FAERS Safety Report 13009936 (Version 2)
Quarter: 2016Q4

REPORT INFORMATION
  Report Type: Report from Study
  Country: AR (occurrence: AR)
  Receive Date: 20161208
  Receipt Date: 20161221
  Transmission Date: 20170207
  Serious: Yes (Hospitalization)
  Sender: FDA-Public Use
  Company Number: PHHY2014AR018632

PATIENT
  Age: 74 Year
  Sex: Female

DRUGS (3)
  1. EXFORGE [Suspect]
     Active Substance: AMLODIPINE BESYLATE\VALSARTAN
     Dosage: 0.5 DF, BID (AMLODIPINE5MG,HYDROCHLOROTHIAZIDE25MG,VALSARTAN 160MG)(1/2 IN MORNING AND 1/2AT NIGHT)
     Route: 048
     Dates: start: 201401
  2. EXFORGE [Suspect]
     Active Substance: AMLODIPINE BESYLATE\VALSARTAN
     Dosage: 1 DF, QD (AMLODIPINE 5MG, HYDROCHLOROTHIAZIDE 25MG, VALSARTAN 160MG)
     Route: 048
     Dates: start: 201401, end: 201401
  3. EXFORGE [Suspect]
     Active Substance: AMLODIPINE BESYLATE\VALSARTAN
     Indication: HYPERTENSION
     Dosage: 1 DF, QD (AMLODIPINE 5MG, HYDROCHLOROTHIAZIDE 25MG, VALSARTAN 160MG) MORE THAN 5 YEARS AGO
     Route: 048

REACTIONS (7)
  - Breast cyst [Unknown]
  - Blood pressure decreased [Recovered/Resolved]
  - Drug prescribing error [Unknown]
  - Oedema peripheral [Recovering/Resolving]
  - Wrong technique in product usage process [Unknown]
  - Breast cancer [Recovering/Resolving]
  - Joint effusion [Unknown]

NARRATIVE: CASE EVENT DATE: 201401
